FAERS Safety Report 6186784-3 (Version None)
Quarter: 2009Q2

REPORT INFORMATION
  Report Type: 
  Country: None (occurrence: None)
  Receive Date: 20090512
  Receipt Date: 20090504
  Transmission Date: 20091009
  Serious: Yes (Other)
  Sender: FDA-Public Use
  Company Number: GB-ROCHE-631974

PATIENT

DRUGS (2)
  1. PYRIMETHAMINE/SULFADOXINE [Suspect]
     Indication: MALARIA
     Dosage: 3 TABLETS OF SULFADOXINE-PYRIMETHAMINE (500MG  SULFADOXINE/ 25MG PYRIMETHAMINE PER TABLET)
  2. AMODIAQUINE [Suspect]
     Indication: MALARIA
     Dosage: FREQUENCY: FOR 3 DAYS

REACTIONS (1)
  - DEATH [None]
